FAERS Safety Report 18486665 (Version 1)
Quarter: 2020Q4

REPORT INFORMATION
  Report Type: Spontaneous
  Country: US (occurrence: US)
  Receive Date: 20201110
  Receipt Date: 20201110
  Transmission Date: 20210114
  Serious: Yes (Other)
  Sender: FDA-Public Use
  Company Number: US-ELI_LILLY_AND_COMPANY-US202010012217

PATIENT
  Sex: Female

DRUGS (2)
  1. BAQSIMI [Suspect]
     Active Substance: GLUCAGON
     Indication: HYPOGLYCAEMIA
     Dosage: 3 MG, UNKNOWN
     Route: 065
  2. BAQSIMI [Suspect]
     Active Substance: GLUCAGON
     Indication: HYPOGLYCAEMIA
     Dosage: 3 MG, UNKNOWN
     Route: 065

REACTIONS (4)
  - Blood glucose decreased [Unknown]
  - Hypoglycaemia [Unknown]
  - Nasal discomfort [Unknown]
  - Drug ineffective [Unknown]

NARRATIVE: CASE EVENT DATE: 20201022
